FAERS Safety Report 5378366-8 (Version None)
Quarter: 2007Q3

REPORT INFORMATION
  Report Type: 
  Country: None (occurrence: None)
  Receive Date: 20070702
  Receipt Date: 20070702
  Transmission Date: 20080115
  Serious: Yes (Hospitalization)
  Sender: FDA-Public Use
  Company Number: None

PATIENT
  Sex: Female
  Weight: 76 kg

DRUGS (2)
  1. CARBOPLATIN [Suspect]
     Dosage: 684 MG
  2. TAXOTERE [Suspect]
     Dosage: 132 MG

REACTIONS (2)
  - FEBRILE NEUTROPENIA [None]
  - THROMBOPHLEBITIS SEPTIC [None]
